FAERS Safety Report 20766759 (Version 1)
Quarter: 2022Q2

REPORT INFORMATION
  Report Type: Spontaneous
  Country: ES (occurrence: ES)
  Receive Date: 20220429
  Receipt Date: 20220429
  Transmission Date: 20220721
  Serious: Yes (Hospitalization)
  Sender: FDA-Public Use
  Company Number: None

PATIENT
  Age: 78 Year
  Sex: Male

DRUGS (4)
  1. LEVOFLOXACIN [Suspect]
     Active Substance: LEVOFLOXACIN
     Indication: COVID-19 pneumonia
     Dosage: LEVOFLOXACIN (2791A), 500MG, FREQUENCY TIME 1DAYS, DURATION 7DAYS
     Route: 065
     Dates: start: 20211023, end: 20211029
  2. SULPIRIDE [Suspect]
     Active Substance: SULPIRIDE
     Dosage: 100 MG IF NEEDED,SULPIRIDE (3076A), DURATION 2DAYS
     Route: 065
     Dates: start: 20211026, end: 20211027
  3. VANCOMYCIN [Suspect]
     Active Substance: VANCOMYCIN
     Indication: Clostridium difficile colitis
     Dosage: VANCOMICIN (3197A), 125MG, FREQUENCY TIME 6HRS, DURATION 12DAYS
     Route: 048
     Dates: start: 20211028, end: 20211108
  4. TRAZODONE [Suspect]
     Active Substance: TRAZODONE HYDROCHLORIDE
     Dosage: TRAZODONE (3160A), 50MG, FREQUENCY TIME 1DAYS, DURATION 15DAYS
     Route: 048
     Dates: start: 20211105, end: 20211119

REACTIONS (1)
  - Mixed liver injury [Recovered/Resolved]

NARRATIVE: CASE EVENT DATE: 20211108
